FAERS Safety Report 4921154-4 (Version None)
Quarter: 2006Q1

REPORT INFORMATION
  Report Type: 
  Country: None (occurrence: None)
  Receive Date: 20060217
  Receipt Date: 20060206
  Transmission Date: 20060701
  Serious: Yes (Death)
  Sender: FDA-Public Use
  Company Number: 2006RR-01594

PATIENT
  Age: 35 Year
  Sex: Male

DRUGS (4)
  1. CODEINE PHOSPHATE (CODEINE PHOSPHATE) [Suspect]
     Dosage: SEE IMAGE
     Route: 048
  2. ACETAMINOPHEN W/ CODEINE [Suspect]
     Dosage: 10 , ORAL
     Route: 048
  3. ZOPLICONE (ZOPICLONE) [Suspect]
     Dosage: 10 UNK, TID ORAL
     Route: 048
  4. PARACETAMOL (PARACETAMOL) TABLET [Suspect]
     Dosage: 40 TABLETS, ORAL
     Route: 048

REACTIONS (3)
  - COMPLETED SUICIDE [None]
  - MULTIPLE DRUG OVERDOSE INTENTIONAL [None]
  - PANCREATITIS [None]
